FAERS Safety Report 5685295-9 (Version None)
Quarter: 2008Q1

REPORT INFORMATION
  Report Type: 
  Country: None (occurrence: None)
  Receive Date: 20080328
  Receipt Date: 20080325
  Transmission Date: 20080703
  Serious: Yes (Other)
  Sender: FDA-Public Use
  Company Number: US-PFIZER INC-2008024329

PATIENT
  Sex: Male

DRUGS (5)
  1. VIAGRA [Suspect]
  2. ZITHROMAX [Interacting]
     Indication: CHLAMYDIAL INFECTION
     Dates: start: 20080101, end: 20080101
  3. ZITHROMAX [Interacting]
     Indication: GONORRHOEA
  4. CIPROFLOXACIN [Interacting]
     Indication: CHLAMYDIAL INFECTION
     Dates: start: 20080101, end: 20080101
  5. CIPROFLOXACIN [Interacting]
     Indication: GONORRHOEA

REACTIONS (9)
  - CHLAMYDIAL INFECTION [None]
  - DIABETES MELLITUS [None]
  - DRUG INTERACTION [None]
  - GONORRHOEA [None]
  - HYPERTENSION [None]
  - PENILE DISCHARGE [None]
  - PENILE PAIN [None]
  - PENILE SWELLING [None]
  - PENIS DISORDER [None]
